FAERS Safety Report 6807692-8 (Version None)
Quarter: 2010Q2

REPORT INFORMATION
  Report Type: 
  Country: None (occurrence: None)
  Receive Date: 20100629
  Receipt Date: 20081118
  Transmission Date: 20101027
  Serious: No
  Sender: FDA-Public Use
  Company Number: US-PFIZER INC-2008083694

PATIENT
  Sex: Male
  Weight: 65 kg

DRUGS (3)
  1. NITROSTAT [Suspect]
     Indication: CARDIAC DISORDER
     Dosage: PRN
     Route: 060
     Dates: start: 19940301
  2. NITROSTAT [Suspect]
     Indication: ANGINA PECTORIS
  3. ALL OTHER THERAPEUTIC PRODUCTS [Concomitant]

REACTIONS (3)
  - FEELING COLD [None]
  - SYNCOPE [None]
  - UNEVALUABLE EVENT [None]
